FAERS Safety Report 15125513 (Version 2)
Quarter: 2018Q3

REPORT INFORMATION
  Report Type: Spontaneous
  Country: US (occurrence: US)
  Receive Date: 20180710
  Receipt Date: 20180720
  Transmission Date: 20181010
  Serious: Yes (Hospitalization, Other)
  Sender: FDA-Public Use
  Company Number: US-PRINSTON PHARMACEUTICAL INC.-2018PRN00345

PATIENT
  Age: 74 Year
  Sex: Male
  Weight: 82.77 kg

DRUGS (8)
  1. LEVETIRACETAM. [Suspect]
     Active Substance: LEVETIRACETAM
     Indication: CONVULSION PROPHYLAXIS
     Dosage: 500 MG, 1X/DAY
     Route: 048
  2. EPA DHA 720 FISH OIL [Concomitant]
     Dosage: 2 DOSAGE UNITS, 5X/WEEK
  3. UNIQUE E [Concomitant]
     Dosage: UNK, 5X/WEEK
  4. MULTIVITAMIN FOOD BASED [Concomitant]
     Dosage: UNK UNK, 5X/WEEK
  5. LEVETIRACETAM. [Suspect]
     Active Substance: LEVETIRACETAM
     Indication: CONVULSION PROPHYLAXIS
     Dosage: 500 MG, 2X/DAY, WITH BREAKFAST  AND DINNER
     Route: 048
  6. VITAMIN C [Concomitant]
     Active Substance: ASCORBIC ACID
     Dosage: 2000 MG, 5X/WEEK
  7. RAMIPRIL. [Concomitant]
     Active Substance: RAMIPRIL
     Dosage: 2.5 MG, 1X/DAY
  8. LEVETIRACETAM. [Suspect]
     Active Substance: LEVETIRACETAM
     Dosage: UNK, 2X/DAY
     Route: 048

REACTIONS (13)
  - Pyrexia [Recovered/Resolved]
  - Pain in extremity [Unknown]
  - Dry throat [Unknown]
  - Feeling abnormal [Unknown]
  - Localised infection [Unknown]
  - Gout [Recovered/Resolved]
  - Blood uric acid increased [Not Recovered/Not Resolved]
  - Paraesthesia oral [Unknown]
  - Throat irritation [Unknown]
  - Myocardial infarction [Recovered/Resolved]
  - Chronic kidney disease [Unknown]
  - Peripheral swelling [Recovered/Resolved]
  - Erythema [Recovered/Resolved]

NARRATIVE: CASE EVENT DATE: 2007
